FAERS Safety Report 8770517 (Version 3)
Quarter: 2014Q2

REPORT INFORMATION
  Report Type: Spontaneous
  Country: US (occurrence: US)
  Receive Date: 20120906
  Receipt Date: 20131017
  Transmission Date: 20141212
  Serious: Yes (Other)
  Sender: FDA-Public Use
  Company Number: US-PFIZER INC-2012217959

PATIENT
  Age: 46 Year
  Sex: Male

DRUGS (1)
  1. DILANTIN-125 [Suspect]
     Dosage: 100 MG, 2 IN AM/ 3 EHS

REACTIONS (4)
  - Gait disturbance [Unknown]
  - Impaired work ability [Unknown]
  - Back disorder [Unknown]
  - Musculoskeletal discomfort [Unknown]
